FAERS Safety Report 18581781 (Version 1)
Quarter: 2020Q4

REPORT INFORMATION
  Report Type: Spontaneous
  Country: FR (occurrence: FR)
  Receive Date: 20201204
  Receipt Date: 20201204
  Transmission Date: 20210114
  Serious: Yes (Hospitalization)
  Sender: FDA-Public Use
  Company Number: FR-TEVA-2020-FR-1853300

PATIENT
  Age: 66 Year
  Sex: Female

DRUGS (10)
  1. FUROSEMIDE. [Suspect]
     Active Substance: FUROSEMIDE
     Indication: HYPERTENSION
     Dosage: UNIT DOSE : 125 MG
     Route: 048
     Dates: end: 20200919
  2. DEPAKINE [Concomitant]
     Active Substance: VALPROATE SODIUM
  3. DABIGATRAN ETEXILATE [Concomitant]
     Active Substance: DABIGATRAN ETEXILATE
  4. OMEPRAZOLE. [Concomitant]
     Active Substance: OMEPRAZOLE
  5. LEVOTHYROX [Concomitant]
     Active Substance: LEVOTHYROXINE
  6. BISOCE [Concomitant]
     Active Substance: BISOPROLOL
  7. ENALAPRIL (MALEATE D) [Suspect]
     Active Substance: ENALAPRIL MALEATE
     Indication: HYPERTENSION
     Dosage: UNIT DOSE : 20 MG
     Route: 048
     Dates: end: 20200919
  8. COLCHICINE OPOCALCIUM 1 MG, COMPRIME [Suspect]
     Active Substance: COLCHICINE
     Indication: PERICARDITIS
     Dosage: UNIT DOSE : 1 MG
     Route: 048
     Dates: start: 20200910, end: 20200919
  9. ALLOPURINOL. [Concomitant]
     Active Substance: ALLOPURINOL
  10. DIFFU K, GELULE [Concomitant]
     Active Substance: POTASSIUM CHLORIDE

REACTIONS (5)
  - Malaise [Recovered/Resolved]
  - Diarrhoea [Recovered/Resolved]
  - Muscular weakness [Recovered/Resolved]
  - Vertigo [Recovered/Resolved]
  - Acute kidney injury [Recovered/Resolved]

NARRATIVE: CASE EVENT DATE: 20200914
